FAERS Safety Report 13093092 (Version 2)
Quarter: 2017Q1

REPORT INFORMATION
  Report Type: Spontaneous
  Country: LB (occurrence: LB)
  Receive Date: 20170106
  Receipt Date: 20170106
  Transmission Date: 20170428
  Serious: Yes (Other)
  Sender: FDA-Public Use
  Company Number: LB-VALIDUS PHARMACEUTICALS LLC-LB-2013VAL000074

PATIENT

DRUGS (3)
  1. DOCETAXEL. [Suspect]
     Active Substance: DOCETAXEL
     Indication: HORMONE-REFRACTORY PROSTATE CANCER
     Dosage: (36 MG/M2, ON DAY 2 OF EACH WEEK)
     Route: 042
  2. ZOLEDRONIC ACID [Suspect]
     Active Substance: ZOLEDRONIC ACID
     Indication: HORMONE-REFRACTORY PROSTATE CANCER
     Dosage: (4 MG,ON DAY 2 ON 1ST AND 5TH WEEK OF EACH CYCLE)
     Route: 042
  3. CALCITRIOL. [Suspect]
     Active Substance: CALCITRIOL
     Indication: HORMONE-REFRACTORY PROSTATE CANCER
     Dosage: 4 DIVIDED DOSES, OVER 4 HOURS ON DAY 1 (0.5 ?G/KG)
     Route: 048

REACTIONS (14)
  - Anaemia [Unknown]
  - Nausea [Unknown]
  - Meningitis listeria [Unknown]
  - Thrombosis [Unknown]
  - Polyneuropathy [Unknown]
  - Dyspnoea [Unknown]
  - Herpes oesophagitis [Unknown]
  - Diarrhoea [Unknown]
  - Onycholysis [Unknown]
  - Ageusia [Unknown]
  - Neutropenia [Unknown]
  - Vomiting [Unknown]
  - Meningitis [Unknown]
  - Fatigue [Unknown]
